FAERS Safety Report 6044730-7 (Version None)
Quarter: 2009Q1

REPORT INFORMATION
  Report Type: 
  Country: None (occurrence: None)
  Receive Date: 20090120
  Receipt Date: 20090114
  Transmission Date: 20090719
  Serious: No
  Sender: FDA-Public Use
  Company Number: US-B.I. PHARMACEUTICALS,INC./RIDGEFIELD-2008-BP-19077BP

PATIENT
  Age: 78 Year
  Sex: Male

DRUGS (8)
  1. MIRAPEX [Suspect]
     Indication: RESTLESS LEGS SYNDROME
     Dosage: .125MG
     Route: 048
     Dates: start: 20081223, end: 20081223
  2. MIRAPEX [Suspect]
     Indication: MUSCLE SPASMS
     Dosage: .125MG
     Route: 048
     Dates: start: 20081218, end: 20081222
  3. MECLIZIN [Concomitant]
  4. VYTORIN [Concomitant]
  5. MELOXICAM [Concomitant]
  6. OMEPRAZOLE [Concomitant]
  7. OXYCODONE HCL [Concomitant]
     Indication: PAIN
  8. CLONAXEP [Concomitant]

REACTIONS (1)
  - HEADACHE [None]
